FAERS Safety Report 6863447-X (Version None)
Quarter: 2010Q3

REPORT INFORMATION
  Report Type: 
  Country: None (occurrence: None)
  Receive Date: 20100719
  Receipt Date: 20100701
  Transmission Date: 20110219
  Serious: Yes (Hospitalization, Other)
  Sender: FDA-Public Use
  Company Number: 2010AP001262

PATIENT
  Age: 66 Year
  Sex: Female

DRUGS (2)
  1. ALENDRONATE SODIUM [Suspect]
     Indication: OSTEOPOROSIS
     Dosage: PO
     Route: 048
  2. RISEDRONATE SODIUM [Suspect]
     Dosage: PO
     Route: 048

REACTIONS (3)
  - FEMUR FRACTURE [None]
  - GAIT DISTURBANCE [None]
  - STRESS FRACTURE [None]
